FAERS Safety Report 6094120-6 (Version None)
Quarter: 2009Q1

REPORT INFORMATION
  Report Type: 
  Country: None (occurrence: None)
  Receive Date: 20090226
  Receipt Date: 20090214
  Transmission Date: 20090719
  Serious: Yes (Other)
  Sender: FDA-Public Use
  Company Number: JP-ROCHE-611845

PATIENT
  Age: 60 Year
  Sex: Female
  Weight: 51 kg

DRUGS (3)
  1. TAMIFLU [Suspect]
     Indication: INFLUENZA
     Dosage: DRUG NAME: TAMIFLU CAPSULE
     Route: 048
     Dates: start: 20090116, end: 20090118
  2. TAMIFLU [Suspect]
     Dosage: DOSE DECREASED
     Route: 048
     Dates: start: 20090119, end: 20090119
  3. NAPA [Suspect]
     Indication: INFLUENZA
     Dosage: DRUG NAME: NAPA (ACETAMINOPHEN).
     Route: 048
     Dates: start: 20090116, end: 20090118

REACTIONS (2)
  - ABNORMAL BEHAVIOUR [None]
  - MENTAL DISORDER [None]
